FAERS Safety Report 10481727 (Version 1)
Quarter: 2014Q3

REPORT INFORMATION
  Report Type: Spontaneous
  Country: US (occurrence: US)
  Receive Date: 20140929
  Receipt Date: 20140929
  Transmission Date: 20150326
  Serious: No
  Sender: FDA-Public Use
  Company Number: US-ROXANE LABORATORIES, INC.-2014-RO-01468RO

PATIENT
  Sex: Female

DRUGS (1)
  1. MEPERIDINE [Suspect]
     Active Substance: MEPERIDINE
     Indication: BACK PAIN
     Route: 048
     Dates: start: 20140918, end: 20140918

REACTIONS (1)
  - Throat irritation [Recovered/Resolved]

NARRATIVE: CASE EVENT DATE: 20140918
